FAERS Safety Report 17655036 (Version 1)
Quarter: 2020Q2

REPORT INFORMATION
  Report Type: Spontaneous
  Country: US (occurrence: US)
  Receive Date: 20200409
  Receipt Date: 20200409
  Transmission Date: 20200713
  Serious: Yes (Hospitalization)
  Sender: FDA-Public Use
  Company Number: None

PATIENT
  Age: 27 Year
  Sex: Female

DRUGS (2)
  1. VONVENDI [Suspect]
     Active Substance: VON WILLEBRAND FACTOR (RECOMBINANT)
     Dosage: ?          OTHER STRENGTH:650U;?
     Route: 042
  2. VONVENDI [Concomitant]
     Active Substance: VON WILLEBRAND FACTOR (RECOMBINANT)

REACTIONS (2)
  - Device related infection [None]
  - Therapy interrupted [None]

NARRATIVE: CASE EVENT DATE: 20200323
